FAERS Safety Report 4358110-3 (Version None)
Quarter: 2004Q2

REPORT INFORMATION
  Report Type: 
  Country: None (occurrence: None)
  Receive Date: 20040511
  Receipt Date: 20040430
  Transmission Date: 20050107
  Serious: Yes (Other)
  Sender: FDA-Public Use
  Company Number: FR-JNJFOC-20040500020

PATIENT
  Age: 32 Year
  Sex: Male

DRUGS (1)
  1. TOPALGIC (TRAMADOL HYDROCHLORIDE) [Suspect]
     Indication: DRUG USE FOR UNKNOWN INDICATION
     Dosage: 100 MG, 2 IN 1 DAY, ORAL
     Route: 048

REACTIONS (2)
  - HAEMATURIA [None]
  - RECTAL HAEMORRHAGE [None]
